FAERS Safety Report 12648658 (Version 1)
Quarter: 2016Q3

REPORT INFORMATION
  Report Type: Report from Study
  Country: US (occurrence: US)
  Receive Date: 20160812
  Receipt Date: 20160812
  Transmission Date: 20161109
  Serious: Yes (Hospitalization)
  Sender: FDA-Public Use
  Company Number: US-BIOGEN-2016BI00275403

PATIENT
  Sex: Female

DRUGS (2)
  1. AVONEX [Suspect]
     Active Substance: INTERFERON BETA-1A
     Indication: MULTIPLE SCLEROSIS
     Route: 065
     Dates: start: 20140522
  2. TECFIDERA [Suspect]
     Active Substance: DIMETHYL FUMARATE
     Indication: MULTIPLE SCLEROSIS
     Route: 065
     Dates: start: 20140522

REACTIONS (7)
  - Apparent death [Unknown]
  - Renal impairment [Recovered/Resolved]
  - Pulmonary oedema [Recovered/Resolved with Sequelae]
  - Dyspnoea [Recovered/Resolved]
  - Hepatic function abnormal [Recovered/Resolved]
  - Sinusitis [Not Recovered/Not Resolved]
  - Multiple sclerosis relapse [Recovered/Resolved]
